FAERS Safety Report 7709706-X (Version None)
Quarter: 2011Q3

REPORT INFORMATION
  Report Type: 
  Country: None (occurrence: None)
  Receive Date: 20110825
  Receipt Date: 20110818
  Transmission Date: 20111222
  Serious: Yes (Hospitalization)
  Sender: FDA-Public Use
  Company Number: FR-GLAXOSMITHKLINE-B0737529A

PATIENT
  Sex: Female

DRUGS (17)
  1. VOGALENE [Concomitant]
     Dosage: 1UNIT TWICE PER DAY
     Route: 065
  2. ACETAMINOPHEN [Concomitant]
     Route: 065
  3. METHOCARBAMOL [Concomitant]
     Dosage: 2UNIT AT NIGHT
     Route: 065
  4. TEXODIL [Concomitant]
     Route: 065
     Dates: start: 20100920
  5. VENTOLIN [Suspect]
     Indication: PRODUCT USED FOR UNKNOWN INDICATION
     Route: 065
     Dates: start: 20100920, end: 20101001
  6. BECLOMETHASONE DIPROPIONATE [Suspect]
     Route: 065
     Dates: start: 20100930
  7. PREDNISOLONE [Concomitant]
     Route: 065
     Dates: start: 20100920
  8. PROPOFAN [Concomitant]
     Route: 065
  9. SPASFON [Concomitant]
     Dosage: 1UNIT TWICE PER DAY
     Route: 065
  10. MOXIFLOXACIN HCL [Suspect]
     Indication: PRODUCT USED FOR UNKNOWN INDICATION
     Dosage: 400MG PER DAY
     Route: 048
     Dates: start: 20100930, end: 20101007
  11. NASACORT [Concomitant]
     Dosage: 2SPR IN THE MORNING
     Route: 045
  12. XYZAL [Concomitant]
     Dosage: 1UNIT PER DAY
     Route: 065
  13. BECLOMETHASONE DIPROPIONATE [Suspect]
     Indication: PRODUCT USED FOR UNKNOWN INDICATION
     Route: 065
     Dates: start: 20100930, end: 20101001
  14. THIOCOLCHICOSIDE [Concomitant]
     Dosage: 2UNIT TWICE PER DAY
     Route: 065
  15. ZOLPIDEM [Concomitant]
     Route: 065
  16. TRAMADOL HCL [Concomitant]
     Dosage: 200MG PER DAY
     Route: 065
  17. LEXOMIL [Concomitant]
     Route: 065

REACTIONS (9)
  - ANGIOEDEMA [None]
  - RASH MACULO-PAPULAR [None]
  - LIP BLISTER [None]
  - URTICARIA [None]
  - PRURITUS [None]
  - BLISTER [None]
  - PYREXIA [None]
  - FACE OEDEMA [None]
  - EYELID OEDEMA [None]
